FAERS Safety Report 21649425 (Version 1)
Quarter: 2022Q4

REPORT INFORMATION
  Report Type: Spontaneous
  Country: US (occurrence: None)
  Receive Date: 20221123
  Receipt Date: 20221123
  Transmission Date: 20230113
  Serious: Yes (Other)
  Sender: FDA-Public Use
  Company Number: None

PATIENT
  Age: 71 Year
  Sex: Female
  Weight: 73.8 kg

DRUGS (10)
  1. AXICABTAGENE CILOLEUCEL [Suspect]
     Active Substance: AXICABTAGENE CILOLEUCEL
     Indication: Diffuse large B-cell lymphoma
     Dosage: 68 ML ONCE INTRAVENOUS DRIP
     Route: 041
     Dates: start: 20221010, end: 20221010
  2. CHLORHEXIDINE [Concomitant]
     Active Substance: CHLORHEXIDINE
     Dates: start: 20221010, end: 20221020
  3. CIPROFLOXACIN [Concomitant]
     Active Substance: CIPROFLOXACIN
     Dates: start: 20221010, end: 20221016
  4. ENOXAPARIN [Concomitant]
     Active Substance: ENOXAPARIN
     Dates: start: 20221010, end: 20221021
  5. FLUCONAZOLE [Concomitant]
     Active Substance: FLUCONAZOLE
     Dates: start: 20221010, end: 20221021
  6. MEMANTINE [Concomitant]
     Active Substance: MEMANTINE
     Dates: start: 20221010, end: 20221021
  7. POTASSIUM CHLORIDE [Concomitant]
     Active Substance: POTASSIUM CHLORIDE
     Dates: start: 20221011, end: 20221021
  8. supersaturated calcium phosphate rinse [Concomitant]
     Dates: start: 20221010, end: 20221021
  9. TBO-FILGRASTIM [Concomitant]
     Active Substance: TBO-FILGRASTIM
     Dates: start: 20221015, end: 20221015
  10. VALACYCLOVIR [Concomitant]
     Active Substance: VALACYCLOVIR HYDROCHLORIDE
     Dates: start: 20221010, end: 20221021

REACTIONS (2)
  - Cytokine release syndrome [None]
  - Infusion related reaction [None]

NARRATIVE: CASE EVENT DATE: 20221016
